FAERS Safety Report 6030272-1 (Version None)
Quarter: 2009Q1

REPORT INFORMATION
  Report Type: 
  Country: None (occurrence: None)
  Receive Date: 20090105
  Receipt Date: 20090105
  Transmission Date: 20090719
  Serious: Yes (Hospitalization)
  Sender: FDA-Public Use
  Company Number: None

PATIENT
  Age: 74 Year
  Sex: Female

DRUGS (16)
  1. CEFTRIAXONE [Suspect]
     Indication: ATRIAL FIBRILLATION
     Dosage: 2 GM DAILY IV
     Route: 042
     Dates: start: 20080821, end: 20080821
  2. CEFTRIAXONE [Suspect]
     Indication: ENDOCARDITIS
     Dosage: 2 GM DAILY IV
     Route: 042
     Dates: start: 20080821, end: 20080821
  3. CEFTRIAXONE [Suspect]
     Indication: HYPERTENSION
     Dosage: 2 GM DAILY IV
     Route: 042
     Dates: start: 20080821, end: 20080821
  4. BENICAR [Concomitant]
  5. SINGULAIR [Concomitant]
  6. DIGOXIN [Concomitant]
  7. COUMADIN [Concomitant]
  8. ATENOLOL [Concomitant]
  9. SLOW-MAG EXTENDED RELEASE [Concomitant]
  10. DYAZIDE [Concomitant]
  11. LIPITOR [Concomitant]
  12. AMBIEN [Concomitant]
  13. PREDNISONE TAB [Concomitant]
  14. FAMOTIDINE [Concomitant]
  15. BENADRYL [Concomitant]
  16. BONIVA [Concomitant]

REACTIONS (6)
  - ANAPHYLACTIC REACTION [None]
  - FLUSHING [None]
  - NAUSEA [None]
  - PARAESTHESIA [None]
  - PHARYNGEAL MASS [None]
  - VOMITING [None]
